FAERS Safety Report 5046472-3 (Version None)
Quarter: 2006Q3

REPORT INFORMATION
  Report Type: 
  Country: None (occurrence: None)
  Receive Date: 20060710
  Receipt Date: 20060628
  Transmission Date: 20061208
  Serious: Yes (Other)
  Sender: FDA-Public Use
  Company Number: PE-ROCHE-453772

PATIENT
  Age: 27 Year
  Sex: Male
  Weight: 45 kg

DRUGS (2)
  1. PEGASYS [Suspect]
     Indication: HEPATITIS C
     Dosage: STRENGTH REPORTED AS 135 MCRG.
     Route: 058
     Dates: start: 20060121, end: 20060606
  2. PEGASYS [Suspect]
     Route: 058
     Dates: start: 20060616

REACTIONS (2)
  - CATHETER RELATED INFECTION [None]
  - GOODPASTURE'S SYNDROME [None]
